FAERS Safety Report 9530026 (Version 5)
Quarter: 2014Q4

REPORT INFORMATION
  Report Type: Report from Study
  Country: DE (occurrence: DE)
  Receive Date: 20130917
  Receipt Date: 20141002
  Transmission Date: 20150529
  Serious: Yes (Hospitalization)
  Sender: FDA-Public Use
  Company Number: DE-ABBVIE-13P-062-1111746-00

PATIENT
  Age: 53 Year
  Sex: Female
  Weight: 110 kg

DRUGS (15)
  1. HYDROMOPHONE [Concomitant]
     Indication: PRODUCT USED FOR UNKNOWN INDICATION
     Dosage: 4 MG/8 MG
  2. ACETYL-SALICYLIC ACID [Concomitant]
     Indication: PRODUCT USED FOR UNKNOWN INDICATION
     Route: 048
  3. METHOTREXATE (MTX) [Concomitant]
     Indication: PSORIASIS
     Dosage: 1.5 PER DAY
  4. MELOXICAM. [Concomitant]
     Active Substance: MELOXICAM
     Indication: PRODUCT USED FOR UNKNOWN INDICATION
     Dosage: 15 MG (0.5 - 1 DAY)
  5. METOPROLOLE [Concomitant]
     Indication: PRODUCT USED FOR UNKNOWN INDICATION
  6. PREDNISOLONE. [Concomitant]
     Active Substance: PREDNISOLONE
     Indication: PRODUCT USED FOR UNKNOWN INDICATION
  7. PANTOPRAZOLE [Concomitant]
     Active Substance: PANTOPRAZOLE SODIUM
     Indication: PRODUCT USED FOR UNKNOWN INDICATION
  8. HUMIRA [Suspect]
     Active Substance: ADALIMUMAB
     Indication: PSORIASIS
     Route: 058
     Dates: start: 20111012, end: 20130625
  9. METHOTREXATE [Suspect]
     Active Substance: METHOTREXATE
     Indication: PSORIATIC ARTHROPATHY
     Route: 048
     Dates: start: 200909, end: 20130324
  10. METHOTREXATE [Suspect]
     Active Substance: METHOTREXATE
     Indication: PSORIASIS
  11. FOLCUR [Concomitant]
     Indication: PRODUCT USED FOR UNKNOWN INDICATION
  12. EUTHYROX [Concomitant]
     Active Substance: LEVOTHYROXINE SODIUM
     Indication: THYROID DISORDER
     Route: 048
  13. METOPROLOLE [Concomitant]
     Indication: PRODUCT USED FOR UNKNOWN INDICATION
  14. NALOXONE/TILIDINE [Concomitant]
     Indication: PRODUCT USED FOR UNKNOWN INDICATION
  15. VALSARTAN. [Concomitant]
     Active Substance: VALSARTAN
     Indication: PRODUCT USED FOR UNKNOWN INDICATION
     Dosage: 160/12.5 MG

REACTIONS (15)
  - Aortic dissection [Unknown]
  - Chest discomfort [Recovered/Resolved]
  - Ischaemia [Unknown]
  - Hypertensive heart disease [Not Recovered/Not Resolved]
  - Chest pain [Recovered/Resolved]
  - Pyrexia [Recovered/Resolved]
  - Sciatica [Not Recovered/Not Resolved]
  - Pleurisy [Recovered/Resolved]
  - Aortic embolus [Recovered/Resolved]
  - Arteriosclerosis coronary artery [Unknown]
  - Abdominal pain upper [Unknown]
  - Nausea [Unknown]
  - Impaired healing [Unknown]
  - Respiratory tract infection [Recovered/Resolved]
  - Sinus tachycardia [Unknown]

NARRATIVE: CASE EVENT DATE: 201303
